FAERS Safety Report 9084259 (Version 1)
Quarter: 2013Q1

REPORT INFORMATION
  Report Type: Spontaneous
  Country: US (occurrence: US)
  Receive Date: 20130130
  Receipt Date: 20130130
  Transmission Date: 20140127
  Serious: Yes (Other)
  Sender: FDA-Public Use
  Company Number: US-JNJFOC-20130113183

PATIENT
  Age: 61 Year
  Sex: Female
  Weight: 70.31 kg

DRUGS (4)
  1. SUDAFED 12 HOUR [Suspect]
     Indication: SEASONAL ALLERGY
     Dosage: 1-2 CAPLETS IN A DAY, 1 IN MORNING AND 1 IN EVENING AS NEEDED, AROUND 10 YEARS AGO IN OCTOBER
     Route: 048
  2. SUDAFED 12 HOUR [Suspect]
     Indication: SEASONAL ALLERGY
     Route: 048
  3. VITAMIN [Concomitant]
     Indication: RAYNAUD^S PHENOMENON
     Dosage: SINCE 15 YEARS
     Route: 065
  4. VITAMIN [Concomitant]
     Indication: DIABETES MELLITUS
     Dosage: SINCE 15 YEARS
     Route: 065

REACTIONS (3)
  - Cardiac fibrillation [Recovered/Resolved]
  - Sinus disorder [Recovered/Resolved]
  - Sinusitis [Recovered/Resolved]
